FAERS Safety Report 7037238-3 (Version None)
Quarter: 2010Q4

REPORT INFORMATION
  Report Type: 
  Country: None (occurrence: None)
  Receive Date: 20101011
  Receipt Date: 20101004
  Transmission Date: 20110411
  Serious: Yes (Other)
  Sender: FDA-Public Use
  Company Number: KR-ROCHE-730624

PATIENT
  Age: 39 Year
  Sex: Female

DRUGS (4)
  1. PEGASYS [Suspect]
     Indication: HEPATITIS C
     Route: 065
  2. PEGASYS [Suspect]
     Dosage: THERAPY AT LOW DOSAGE
     Route: 065
  3. RIBAVIRIN [Suspect]
     Indication: HEPATITIS C
     Route: 065
  4. RIBAVIRIN [Suspect]
     Dosage: THERAPY AT LOW DOSAGE
     Route: 065

REACTIONS (2)
  - HEPATITIS CHOLESTATIC [None]
  - PANCYTOPENIA [None]
